FAERS Safety Report 15844773 (Version 1)
Quarter: 2019Q1

REPORT INFORMATION
  Report Type: Spontaneous
  Country: BR (occurrence: BR)
  Receive Date: 20190118
  Receipt Date: 20190118
  Transmission Date: 20190417
  Serious: Yes (Other)
  Sender: FDA-Public Use
  Company Number: PHHY2019BR010818

PATIENT
  Sex: Female

DRUGS (1)
  1. LECTRUM [Suspect]
     Active Substance: LEUPROLIDE ACETATE
     Indication: PRECOCIOUS PUBERTY
     Dosage: UNK (AMPOULE 1.5 ML)
     Route: 065
     Dates: start: 2015, end: 2016

REACTIONS (2)
  - Oesophageal candidiasis [Unknown]
  - Abdominal pain upper [Unknown]

NARRATIVE: CASE EVENT DATE: 2018
